FAERS Safety Report 4559736-4 (Version None)
Quarter: 2005Q1

REPORT INFORMATION
  Report Type: 
  Country: None (occurrence: None)
  Receive Date: 20050114
  Receipt Date: 20041104
  Transmission Date: 20050727
  Serious: Yes (Hospitalization)
  Sender: FDA-Public Use
  Company Number: BDI-006654

PATIENT
  Sex: Male

DRUGS (10)
  1. PROHANCE [Suspect]
     Dosage: 40 MG ONCE IV
     Route: 042
     Dates: start: 20041104, end: 20041104
  2. CYCLOSPORINE [Concomitant]
  3. ATENOLOL [Concomitant]
  4. ALLOPURINOL [Concomitant]
  5. ATENOLOL [Concomitant]
  6. ALLOPURINOL [Concomitant]
  7. ASPIRIN [Concomitant]
  8. INDERAL [Concomitant]
  9. COLCHICINE [Concomitant]
  10. OMEGA 3 [Concomitant]

REACTIONS (5)
  - DIZZINESS [None]
  - HYPERHIDROSIS [None]
  - HYPOTENSION [None]
  - NAUSEA [None]
  - PULSE PRESSURE DECREASED [None]
